FAERS Safety Report 4890687-1 (Version None)
Quarter: 2006Q1

REPORT INFORMATION
  Report Type: 
  Country: None (occurrence: None)
  Receive Date: 20060125
  Receipt Date: 20020418
  Transmission Date: 20060701
  Serious: Yes (Other)
  Sender: FDA-Public Use
  Company Number: US-BRISTOL-MYERS SQUIBB COMPANY-11832508

PATIENT
  Age: 41 Year
  Sex: Female

DRUGS (7)
  1. STADOL [Suspect]
     Indication: MIGRAINE
     Route: 045
     Dates: start: 19930930, end: 19961226
  2. STADOL [Suspect]
     Indication: PAIN
     Route: 045
     Dates: start: 19930930, end: 19961226
  3. BUTALBITAL + CAFFEINE + ACETAMINOPHEN [Concomitant]
  4. PHENERGAN [Concomitant]
  5. HYDROCODONE + ACETAMINOPHEN [Concomitant]
  6. DIAZEPAM [Concomitant]
  7. OXYCODONE HCL + ACETAMINOPHEN [Concomitant]

REACTIONS (1)
  - DEPENDENCE [None]
